FAERS Safety Report 19065174 (Version 1)
Quarter: 2021Q1

REPORT INFORMATION
  Report Type: Other
  Country: CN (occurrence: CN)
  Receive Date: 20210327
  Receipt Date: 20210327
  Transmission Date: 20210420
  Serious: Yes (Other)
  Sender: FDA-Public Use
  Company Number: CN-ROCHE-2792148

PATIENT
  Sex: Female

DRUGS (4)
  1. PACLITAXEL. [Suspect]
     Active Substance: PACLITAXEL
     Dosage: SPECIFICATION 5 ML: 10 MG?A TOTAL OF 6 CYCLES
     Route: 033
  2. PACLITAXEL. [Suspect]
     Active Substance: PACLITAXEL
     Indication: OVARIAN CANCER
     Dosage: SPECIFICATION 5 ML: 10 MG?A TOTAL OF 6 CYCLES
     Route: 041
  3. BEVACIZUMAB. [Suspect]
     Active Substance: BEVACIZUMAB
     Indication: OVARIAN CANCER
     Dosage: SPECIFICATION 400MG: 16ML?START: FIRST DAY OF THE SECOND CYCLE
     Route: 041
  4. CISPLATIN. [Suspect]
     Active Substance: CISPLATIN
     Indication: OVARIAN CANCER
     Dosage: ON DAY 1, REPEATED EVERY 3 WEEKS FOR A TOTAL OF 6 CYCLES?SPECIFICATION 50 MG: 50 ML
     Route: 033

REACTIONS (2)
  - Renal impairment [Unknown]
  - Hepatic function abnormal [Unknown]
